FAERS Safety Report 10177850 (Version 1)
Quarter: 2014Q2

REPORT INFORMATION
  Report Type: Report from Study
  Country: DE (occurrence: DE)
  Receive Date: 20140516
  Receipt Date: 20140516
  Transmission Date: 20141212
  Serious: Yes (Hospitalization)
  Sender: FDA-Public Use
  Company Number: US-ASTRAZENECA-2014SE33050

PATIENT
  Age: 5 Month
  Sex: Male
  Weight: 7.7 kg

DRUGS (4)
  1. SYNAGIS [Suspect]
     Indication: BRONCHITIS
     Route: 030
     Dates: start: 20131105, end: 20131105
  2. SYNAGIS [Suspect]
     Indication: BRONCHITIS
     Route: 030
     Dates: start: 20131203, end: 20131203
  3. SYNAGIS [Suspect]
     Indication: BRONCHITIS
     Route: 030
     Dates: start: 20140102, end: 20140102
  4. SYNAGIS [Suspect]
     Indication: BRONCHITIS
     Route: 030
     Dates: start: 20140130, end: 20140130

REACTIONS (2)
  - Bronchitis [Recovered/Resolved]
  - Respiratory syncytial virus infection [Unknown]
